FAERS Safety Report 18610197 (Version 1)
Quarter: 2020Q4

REPORT INFORMATION
  Report Type: Other
  Country: US (occurrence: US)
  Receive Date: 20201214
  Receipt Date: 20201214
  Transmission Date: 20210114
  Serious: Yes (Other)
  Sender: FDA-Public Use
  Company Number: US-ROCHE-2641253

PATIENT
  Sex: Male

DRUGS (17)
  1. XELODA [Suspect]
     Active Substance: CAPECITABINE
     Dosage: TAKE 2 TABLET(S) BY MOUTH ALONG WITH 4-500MG TABLET(S) BY MOUTH TWICE A DAY AS DIRECTED
     Route: 048
  2. ZINC. [Concomitant]
     Active Substance: ZINC
     Dosage: TAKE 1 TABLET BY MOUTH DAILY.PATIENT OWN OTC SUPPLEMENT
     Route: 048
  3. ZOFRAN [Concomitant]
     Active Substance: ONDANSETRON HYDROCHLORIDE
     Indication: NAUSEA
     Dosage: TAKE 1 TABLET (4 MG TOTAL) BY MOUTH DAILY. ALTERNATE WITH COMPAZINE
     Route: 048
  4. PRINIVIL [Concomitant]
     Active Substance: LISINOPRIL
     Dosage: TAKE 40 MG BY MOUTH DAILY
     Route: 048
  5. LOPRESSOR [Concomitant]
     Active Substance: METOPROLOL TARTRATE
     Dosage: TAKE 0.5TABLET (12.5MG TOTAL) MG  BY MOUTH 2 (TWO)TIMES A DAY
     Route: 048
  6. NITROSTAT [Concomitant]
     Active Substance: NITROGLYCERIN
     Dosage: TAKE 1 TABLET (4 MG TOTAL) BY MOUTH DAILY
  7. CRESTOR [Concomitant]
     Active Substance: ROSUVASTATIN CALCIUM
     Dosage: TAKE 1 TABLET (10 MG TOTAL) BY MOUTH DAILY
     Route: 048
  8. CALAN SR [Concomitant]
     Active Substance: VERAPAMIL HYDROCHLORIDE
     Dosage: TAKE 180 MG BY MOUTH NIGHTLY
     Route: 048
  9. SINEQUAN [Concomitant]
     Active Substance: DOXEPIN HYDROCHLORIDE
     Dosage: TAKE 10 MG  BY MOUTH NIGHTLY
     Route: 048
  10. ZOFRAN [Concomitant]
     Active Substance: ONDANSETRON HYDROCHLORIDE
     Indication: VOMITING
  11. PLAVIX [Concomitant]
     Active Substance: CLOPIDOGREL BISULFATE
     Dosage: TAKE 1 TABLET(75 MG) BY MOUTH DAILY
     Route: 048
  12. HYDRODIURIL [Concomitant]
     Active Substance: HYDROCHLOROTHIAZIDE
     Dosage: TAKE 12.5 MG  BY MOUTH DAILY
     Route: 048
  13. AMBIEN [Concomitant]
     Active Substance: ZOLPIDEM TARTRATE
     Dosage: TAKE 10 MG BY MOUTH NIGHTLY AS NEEDED
     Route: 048
  14. ASPIRIN. [Concomitant]
     Active Substance: ASPIRIN
     Route: 048
  15. VITAMIN D3 [Concomitant]
     Active Substance: CHOLECALCIFEROL
     Dosage: TAKE 1000 UNITS BY MOUTH DAILY
     Route: 048
  16. XELODA [Suspect]
     Active Substance: CAPECITABINE
     Indication: LYMPHOCYTIC LEUKAEMIA
     Dosage: TAKE 2 TABLET(S) BY MOUTH ALONG WITH 4-500MG TABLET(S) BY MOUTH TWICE A DAY AS DIRECTED
     Route: 048
  17. XANAX [Concomitant]
     Active Substance: ALPRAZOLAM
     Dosage: AS NEEDED
     Route: 048

REACTIONS (3)
  - Neoplasm malignant [Unknown]
  - Off label use [Unknown]
  - Intentional product use issue [Unknown]
